FAERS Safety Report 4515466-6 (Version None)
Quarter: 2004Q4

REPORT INFORMATION
  Report Type: 
  Country: None (occurrence: None)
  Receive Date: 20041126
  Receipt Date: 20041115
  Transmission Date: 20050328
  Serious: Yes (Life-Threatening, Hospitalization)
  Sender: FDA-Public Use
  Company Number: 2004089893

PATIENT
  Age: 70 Year
  Sex: Female
  Weight: 130 kg

DRUGS (6)
  1. FLUCONAZOLE [Suspect]
     Indication: SEPSIS
     Dosage: 100 MG (100 MG 1 IN 1 D ) ORAL
     Route: 048
     Dates: start: 20040628, end: 20040715
  2. TIENAM (CILASTATIN, IMIPENEM) [Suspect]
     Indication: SEPSIS
     Dosage: 3 GRAM (500 MG, 6 IN 1 D) INTRAVENOUS
     Route: 042
     Dates: start: 20040701, end: 20040712
  3. ACYCLOVIR [Concomitant]
  4. CEFTRIAXONE [Concomitant]
  5. RIFAMPICIN [Suspect]
     Indication: SEPSIS
     Dosage: 1200 MG (600 MG 2 IN 1 D) INTRAVENOUS
     Route: 042
     Dates: start: 20040711, end: 20040715
  6. VANCOMYCIN [Suspect]
     Indication: SEPSIS
     Dosage: 2.5 GRAM (1 GRAM, 1D) INTRAVENOUS
     Route: 042
     Dates: start: 20040629, end: 20040715

REACTIONS (3)
  - PAIN [None]
  - STEVENS-JOHNSON SYNDROME [None]
  - TOXIC EPIDERMAL NECROLYSIS [None]
